FAERS Safety Report 19980288 (Version 1)
Quarter: 2021Q4

REPORT INFORMATION
  Report Type: Spontaneous
  Country: PL (occurrence: PL)
  Receive Date: 20211021
  Receipt Date: 20211021
  Transmission Date: 20220303
  Serious: Yes (Other)
  Sender: FDA-Public Use
  Company Number: PL-ROCHE-2936852

PATIENT
  Age: 43 Year
  Sex: Male
  Weight: 110 kg

DRUGS (3)
  1. HEMLIBRA [Suspect]
     Active Substance: EMICIZUMAB-KXWH
     Indication: Product used for unknown indication
     Dosage: DOSE 3 MG/KG (330 MG= 2.2 ML) 4X WEEKLY AND THEN FROM WEEK 5 EVERY 2 WEEKS SC (2 SYRINGES) ??FROM WE
     Route: 058
     Dates: start: 20170323
  2. ZYRTEC (POLAND) [Concomitant]
  3. CRYOPRECIPITATED ANTIHEMOPHILIC FACTOR (HUMAN) [Concomitant]
     Active Substance: CRYOPRECIPITATED ANTIHEMOPHILIC FACTOR (HUMAN)

REACTIONS (7)
  - Haemorrhage [Unknown]
  - Haematuria [Unknown]
  - Traumatic haematoma [Unknown]
  - Erythema [Unknown]
  - Administration site pruritus [Unknown]
  - Headache [Unknown]
  - Arrhythmia [Unknown]
